FAERS Safety Report 22243030 (Version 1)
Quarter: 2023Q2

REPORT INFORMATION
  Report Type: Spontaneous
  Country: IT (occurrence: IT)
  Receive Date: 20230424
  Receipt Date: 20230424
  Transmission Date: 20230722
  Serious: Yes (Death, Other)
  Sender: FDA-Public Use
  Company Number: IT-BRISTOL-MYERS SQUIBB COMPANY-2023-057602

PATIENT

DRUGS (2)
  1. NIVOLUMAB [Suspect]
     Active Substance: NIVOLUMAB
     Indication: Malignant melanoma
  2. IPILIMUMAB [Suspect]
     Active Substance: IPILIMUMAB
     Indication: Malignant melanoma

REACTIONS (5)
  - Immune-mediated myasthenia gravis [Fatal]
  - Immune-mediated myositis [Fatal]
  - Immune-mediated myocarditis [Fatal]
  - Hypertransaminasaemia [Unknown]
  - Type 1 diabetes mellitus [Unknown]
